FAERS Safety Report 7219472-2 (Version None)
Quarter: 2011Q1

REPORT INFORMATION
  Report Type: 
  Country: None (occurrence: None)
  Receive Date: 20110111
  Receipt Date: 20110103
  Transmission Date: 20110831
  Serious: Yes (Death, Life-Threatening, Hospitalization)
  Sender: FDA-Public Use
  Company Number: FR-JNJFOC-20110100188

PATIENT
  Sex: Male

DRUGS (27)
  1. POLARAMINE [Suspect]
     Indication: PRODUCT USED FOR UNKNOWN INDICATION
     Route: 042
  2. LIDOCAINE HYDROCHLORIDE IN PLASTIC CONTAINER [Concomitant]
     Route: 003
  3. HYDROCORTISONE [Concomitant]
     Route: 065
  4. TOPALGIC [Suspect]
     Indication: PAIN
     Route: 048
  5. EMEND [Suspect]
     Indication: PRODUCT USED FOR UNKNOWN INDICATION
     Route: 048
  6. BIONOLYTE [Concomitant]
     Route: 065
  7. ZOPHREN [Concomitant]
     Route: 065
  8. HALDOL [Suspect]
     Indication: NAUSEA
     Route: 048
     Dates: start: 20091112, end: 20091113
  9. TRIFLUCAN [Suspect]
     Indication: FEBRILE BONE MARROW APLASIA
     Route: 048
  10. EFFERALGAN [Concomitant]
     Route: 065
  11. NEUPOGEN [Concomitant]
     Route: 065
  12. CIPROFLOXACIN HCL [Suspect]
     Indication: FEBRILE BONE MARROW APLASIA
     Route: 048
  13. AMITRIPTYLINE HCL [Suspect]
     Indication: PRODUCT USED FOR UNKNOWN INDICATION
     Route: 048
  14. CARBOPLATIN [Suspect]
     Indication: EXTRAGONADAL PRIMARY GERM CELL TUMOUR MIXED STAGE I
     Route: 042
  15. LEXOMIL [Concomitant]
     Route: 065
  16. FLAGYL [Concomitant]
     Indication: FEBRILE BONE MARROW APLASIA
     Route: 065
  17. EMEND [Suspect]
     Route: 048
  18. ORAMORPH SR [Concomitant]
     Route: 065
  19. AMITRIPTYLINE HCL [Suspect]
     Route: 048
  20. NEURONTIN [Suspect]
     Indication: PRODUCT USED FOR UNKNOWN INDICATION
     Route: 048
  21. CONTRAMAL LP [Suspect]
     Indication: PAIN
     Route: 048
  22. AUGMENTIN '125' [Suspect]
     Indication: FEBRILE BONE MARROW APLASIA
     Route: 048
  23. OXYNORM [Concomitant]
     Route: 065
  24. PRIMPERAN TAB [Concomitant]
     Route: 065
  25. NEUPOGEN [Concomitant]
     Route: 065
  26. ETOPOSIDE [Suspect]
     Indication: EXTRAGONADAL PRIMARY GERM CELL TUMOUR MIXED STAGE I
     Route: 042
  27. OXYCONTIN [Concomitant]
     Route: 065

REACTIONS (4)
  - OFF LABEL USE [None]
  - FEBRILE BONE MARROW APLASIA [None]
  - INTESTINAL OBSTRUCTION [None]
  - ILEITIS [None]
